FAERS Safety Report 24608894 (Version 1)
Quarter: 2024Q4

REPORT INFORMATION
  Report Type: Report from Study
  Country: CA (occurrence: CA)
  Receive Date: 20241112
  Receipt Date: 20241112
  Transmission Date: 20250115
  Serious: Yes (Other)
  Sender: ALEXION PHARMACEUTICALS
  Company Number: CA-AstraZeneca-CH-00741586A

PATIENT

DRUGS (9)
  1. BENRALIZUMAB [Suspect]
     Active Substance: BENRALIZUMAB
     Indication: Asthma
     Dosage: 30 MICROGRAM
  2. BENRALIZUMAB [Suspect]
     Active Substance: BENRALIZUMAB
     Dosage: 30 MICROGRAM
  3. BENRALIZUMAB [Suspect]
     Active Substance: BENRALIZUMAB
     Dosage: 30 MICROGRAM
  4. BENRALIZUMAB [Suspect]
     Active Substance: BENRALIZUMAB
     Dosage: 30 MICROGRAM
  5. PREDNISONE [Concomitant]
     Active Substance: PREDNISONE
  6. FLOVENT [Concomitant]
     Active Substance: FLUTICASONE PROPIONATE
  7. VENTOLIN [Concomitant]
     Active Substance: ALBUTEROL SULFATE
  8. TRELEGY ELLIPTA [Concomitant]
     Active Substance: FLUTICASONE FUROATE\UMECLIDINIUM BROMIDE\VILANTEROL TRIFENATATE
  9. ALVESCO [Concomitant]
     Active Substance: CICLESONIDE

REACTIONS (2)
  - Fall [Unknown]
  - Patella fracture [Recovering/Resolving]
